FAERS Safety Report 16953006 (Version 1)
Quarter: 2019Q4

REPORT INFORMATION
  Report Type: Spontaneous
  Country: BR (occurrence: BR)
  Receive Date: 20191023
  Receipt Date: 20191023
  Transmission Date: 20200122
  Serious: Yes (Other)
  Sender: FDA-Public Use
  Company Number: BR-B.I. PHARMACEUTICALS,INC./RIDGEFIELD-2019-BI-108427

PATIENT
  Age: 92 Year
  Sex: Male

DRUGS (2)
  1. PRAXBIND [Suspect]
     Active Substance: IDARUCIZUMAB
     Indication: PROCOAGULANT THERAPY
     Route: 065
     Dates: start: 20191016, end: 20191016
  2. PRAXBIND [Suspect]
     Active Substance: IDARUCIZUMAB
     Indication: SUBDURAL HAEMATOMA
     Route: 065
     Dates: start: 20191014, end: 20191014

REACTIONS (2)
  - Cerebral haemorrhage [Unknown]
  - Post procedural complication [Recovered/Resolved]
